FAERS Safety Report 17164563 (Version 1)
Quarter: 2019Q4

REPORT INFORMATION
  Report Type: Spontaneous
  Country: ES (occurrence: ES)
  Receive Date: 20191217
  Receipt Date: 20191217
  Transmission Date: 20200122
  Serious: Yes (Other)
  Sender: FDA-Public Use
  Company Number: ES-MYLANLABS-2019M1123154

PATIENT
  Age: 71 Year
  Sex: Male

DRUGS (9)
  1. METAMIZOL                          /06276701/ [Suspect]
     Active Substance: METAMIZOLE
     Indication: CHEST PAIN
     Dosage: 2 GRAM, TOTAL (2G, DOSIS UNICA, AHORA)
     Route: 042
     Dates: start: 20190720, end: 20190720
  2. ACETYLSALICYLIC ACID [Concomitant]
     Active Substance: ASPIRIN
     Dosage: UNK,
     Route: 048
  3. IBUPROFENO [Concomitant]
     Active Substance: IBUPROFEN
     Dosage: UNK
     Route: 048
     Dates: start: 20190516
  4. TRAMADOL. [Suspect]
     Active Substance: TRAMADOL
     Indication: CHEST PAIN
     Dosage: 100 MILLIGRAM, TOTAL (100MG DOSIS UNICA)
     Route: 042
     Dates: start: 20190720, end: 20190720
  5. LOSARTAN                           /01121602/ [Concomitant]
     Active Substance: LOSARTAN
     Dosage: UNK
     Route: 048
  6. METOCLOPRAMIDA                     /00041901/ [Suspect]
     Active Substance: METOCLOPRAMIDE
     Indication: CHEST PAIN
     Dosage: 10 MILLIGRAM, TOTAL (10 MG DOSIS ?NICA)
     Route: 042
     Dates: start: 20190720, end: 20190720
  7. BISOPROLOL [Concomitant]
     Active Substance: BISOPROLOL
     Dosage: UNK,
     Route: 048
  8. CRESTOR [Concomitant]
     Active Substance: ROSUVASTATIN CALCIUM
     Dosage: UNK
     Route: 048
  9. SPIOLTO RESPIMAT [Concomitant]
     Active Substance: OLODATEROL HYDROCHLORIDE\TIOTROPIUM BROMIDE MONOHYDRATE
     Dosage: UNK
     Route: 055

REACTIONS (1)
  - Angioedema [Recovering/Resolving]

NARRATIVE: CASE EVENT DATE: 20190721
